FAERS Safety Report 13367959 (Version 1)
Quarter: 2017Q1

REPORT INFORMATION
  Report Type: Spontaneous
  Country: CN (occurrence: CN)
  Receive Date: 20170324
  Receipt Date: 20170324
  Transmission Date: 20170429
  Serious: Yes (Other)
  Sender: FDA-Public Use
  Company Number: CN-ACCORD-049355

PATIENT
  Age: 20 Year
  Sex: Male

DRUGS (11)
  1. IFOSFAMIDE. [Suspect]
     Active Substance: IFOSFAMIDE
     Indication: EMBRYONAL RHABDOMYOSARCOMA
  2. VINCRISTINE [Suspect]
     Active Substance: VINCRISTINE
     Indication: EMBRYONAL RHABDOMYOSARCOMA
  3. DACTINOMYCIN [Suspect]
     Active Substance: DACTINOMYCIN
     Indication: METASTASES TO LUNG
  4. IFOSFAMIDE. [Suspect]
     Active Substance: IFOSFAMIDE
     Indication: METASTASES TO LUNG
  5. ETOPOSIDE. [Suspect]
     Active Substance: ETOPOSIDE
     Indication: METASTASES TO LYMPH NODES
  6. ETOPOSIDE. [Suspect]
     Active Substance: ETOPOSIDE
     Indication: EMBRYONAL RHABDOMYOSARCOMA
  7. ETOPOSIDE. [Suspect]
     Active Substance: ETOPOSIDE
     Indication: METASTASES TO LUNG
  8. DACTINOMYCIN [Suspect]
     Active Substance: DACTINOMYCIN
     Indication: METASTASES TO LYMPH NODES
  9. IFOSFAMIDE. [Suspect]
     Active Substance: IFOSFAMIDE
     Indication: METASTASES TO LYMPH NODES
  10. DACTINOMYCIN [Suspect]
     Active Substance: DACTINOMYCIN
     Indication: EMBRYONAL RHABDOMYOSARCOMA
  11. CYCLOPHOSPHAMIDE/CYCLOPHOSPHAMIDE MONOHYDRATE [Suspect]
     Active Substance: CYCLOPHOSPHAMIDE
     Indication: EMBRYONAL RHABDOMYOSARCOMA

REACTIONS (1)
  - Liver injury [Recovered/Resolved]
